FAERS Safety Report 8844623 (Version 1)
Quarter: 2012Q4

REPORT INFORMATION
  Report Type: Spontaneous
  Country: US (occurrence: None)
  Receive Date: 20121016
  Receipt Date: 20121016
  Transmission Date: 20130627
  Serious: Yes (Hospitalization)
  Sender: FDA-Public Use
  Company Number: None

PATIENT
  Age: 76 Year
  Sex: Male

DRUGS (7)
  1. WARFARIN [Suspect]
     Dosage: CHRONIC WITH RECENT INCREASE
     Route: 048
  2. NIFEDIPINE [Concomitant]
  3. ATENOLOL [Concomitant]
  4. OMEPRAZOLE [Concomitant]
  5. WELLBUTRIN SR [Concomitant]
  6. LEVOTHYROXINE [Concomitant]
  7. LORAZEPAM [Concomitant]

REACTIONS (3)
  - International normalised ratio increased [None]
  - Haemarthrosis [None]
  - Joint injury [None]
